FAERS Safety Report 6498004-0 (Version None)
Quarter: 2009Q4

REPORT INFORMATION
  Report Type: 
  Country: None (occurrence: None)
  Receive Date: 20091215
  Receipt Date: 20091203
  Transmission Date: 20100525
  Serious: Yes (Other)
  Sender: FDA-Public Use
  Company Number: PHHY2009JP53647

PATIENT
  Sex: Male
  Weight: 49 kg

DRUGS (13)
  1. ICL670A ICL+DISTAB [Suspect]
     Indication: APLASTIC ANAEMIA
     Dosage: 1000 MG/DAY
     Route: 048
     Dates: start: 20080908, end: 20081020
  2. ICL670A ICL+DISTAB [Suspect]
     Indication: IRON OVERLOAD
     Dosage: 500 MG/DAY
     Route: 048
     Dates: start: 20081020, end: 20090316
  3. PROGRAF [Suspect]
     Dosage: 0.4 MG/DAY
     Route: 048
  4. BAKTAR [Suspect]
     Dosage: 1 DF/DAY
     Route: 048
  5. DESFERAL [Concomitant]
     Route: 030
  6. LIPITOR [Concomitant]
     Dosage: 10 MG, UNK
     Route: 048
  7. PREDONINE [Concomitant]
     Dosage: 5 MG, UNK
     Route: 048
  8. THYRADIN [Concomitant]
     Dosage: 50 UG, UNK
     Route: 048
  9. NU-LOTAN [Concomitant]
     Dosage: 25 MG, UNK
     Route: 048
  10. ITRIZOLE [Concomitant]
     Dosage: 100 MG, UNK
     Route: 048
  11. MYSLEE [Concomitant]
     Dosage: 10 MG, UNK
     Route: 048
  12. PENFILL R [Concomitant]
  13. LOXONIN [Concomitant]

REACTIONS (2)
  - HYPOCALCAEMIA [None]
  - RENAL DISORDER [None]
